FAERS Safety Report 21916818 (Version 3)
Quarter: 2023Q1

REPORT INFORMATION
  Report Type: Spontaneous
  Country: US (occurrence: US)
  Receive Date: 20230126
  Receipt Date: 20230131
  Transmission Date: 20230418
  Serious: Yes (Other)
  Sender: FDA-Public Use
  Company Number: US-PFIZER INC-202300038234

PATIENT
  Age: 61 Year
  Sex: Female
  Weight: 86.18 kg

DRUGS (2)
  1. INLYTA [Suspect]
     Active Substance: AXITINIB
     Indication: Renal cell carcinoma stage IV
     Dosage: 5 MG, 2X/DAY (5MG TWICE A DAY, ONE TABLET IN THE MORNING AND EVENING)
  2. SYNTHROID [Concomitant]
     Active Substance: LEVOTHYROXINE SODIUM
     Indication: Thyroid disorder
     Dosage: 0.125 MG, DAILY (0.125MG TABLET DAILY)

REACTIONS (5)
  - Pneumonectomy [Unknown]
  - Neoplasm progression [Unknown]
  - Palmar-plantar erythrodysaesthesia syndrome [Unknown]
  - Blood pressure increased [Unknown]
  - Pain in extremity [Unknown]
